FAERS Safety Report 17499656 (Version 2)
Quarter: 2020Q2

REPORT INFORMATION
  Report Type: Spontaneous
  Country: US (occurrence: US)
  Receive Date: 20200304
  Receipt Date: 20200424
  Transmission Date: 20200713
  Serious: No
  Sender: FDA-Public Use
  Company Number: US-TEVA-2020-US-1194471

PATIENT
  Sex: Female

DRUGS (1)
  1. NUVIGIL [Suspect]
     Active Substance: ARMODAFINIL
     Route: 065

REACTIONS (3)
  - Fatigue [Unknown]
  - Malaise [Unknown]
  - Lethargy [Unknown]
